FAERS Safety Report 25410201 (Version 2)
Quarter: 2025Q3

REPORT INFORMATION
  Report Type: Spontaneous
  Country: US (occurrence: US)
  Receive Date: 20250608
  Receipt Date: 20250808
  Transmission Date: 20251020
  Serious: No
  Sender: SANOFI AVENTIS
  Company Number: US-SA-2025SA159991

PATIENT
  Age: 57 Year
  Sex: Female

DRUGS (3)
  1. DUPIXENT [Suspect]
     Active Substance: DUPILUMAB
     Indication: Neurodermatitis
     Route: 058
     Dates: start: 202504, end: 202504
  2. DUPIXENT [Suspect]
     Active Substance: DUPILUMAB
     Dosage: 300 MG, QOW
     Route: 058
     Dates: start: 2025, end: 202505
  3. NEMLUVIO [Concomitant]
     Active Substance: NEMOLIZUMAB-ILTO

REACTIONS (5)
  - Rash erythematous [Not Recovered/Not Resolved]
  - Dry skin [Unknown]
  - Skin exfoliation [Not Recovered/Not Resolved]
  - Erythema [Recovered/Resolved]
  - Skin fissures [Recovered/Resolved]

NARRATIVE: CASE EVENT DATE: 20250101
